FAERS Safety Report 7912601-4 (Version None)
Quarter: 2011Q4

REPORT INFORMATION
  Report Type: 
  Country: None (occurrence: None)
  Receive Date: 20111114
  Receipt Date: 20111102
  Transmission Date: 20120403
  Serious: No
  Sender: FDA-Public Use
  Company Number: US-BAYER-2011-107129

PATIENT
  Age: 79 Year
  Sex: Female
  Weight: 68 kg

DRUGS (4)
  1. ALEVE (CAPLET) [Suspect]
     Dosage: UNK
     Dates: start: 20111101
  2. AMLODIPINE [Concomitant]
  3. LISINOPRIL [Concomitant]
  4. LIPITOR [Concomitant]

REACTIONS (1)
  - NO ADVERSE EVENT [None]
